FAERS Safety Report 8684240 (Version 2)
Quarter: 2017Q4

REPORT INFORMATION
  Report Type: Spontaneous
  Country: US (occurrence: US)
  Receive Date: 20120726
  Receipt Date: 20171115
  Transmission Date: 20180321
  Serious: Yes (Other)
  Sender: FDA-Public Use
  Company Number: US-MYLANLABS-2012S1000820

PATIENT
  Sex: Female
  Weight: 66 kg

DRUGS (16)
  1. SIMVASTATIN. [Concomitant]
     Active Substance: SIMVASTATIN
     Indication: PRODUCT USED FOR UNKNOWN INDICATION
     Dosage: 20 MG,UNK
  2. PENICILLIN VK [Concomitant]
     Active Substance: PENICILLIN V POTASSIUM
     Indication: PRODUCT USED FOR UNKNOWN INDICATION
     Dosage: 250 MG,UNK
  3. CLONIDINE HYDROCHLORIDE TABLETS USP [Suspect]
     Active Substance: CLONIDINE HYDROCHLORIDE
     Indication: CARDIAC DISORDER
     Dosage: 0.2 MG, BID
     Route: 048
     Dates: end: 1998
  4. ASPIRIN. [Concomitant]
     Active Substance: ASPIRIN
     Indication: PRODUCT USED FOR UNKNOWN INDICATION
     Dosage: 81 MG,UNK
  5. CALCIUM [Concomitant]
     Active Substance: CALCIUM
     Indication: PRODUCT USED FOR UNKNOWN INDICATION
     Dosage: UNK
  6. METAMUCIL [Concomitant]
     Active Substance: PLANTAGO SEED
     Indication: PRODUCT USED FOR UNKNOWN INDICATION
     Dosage: UNK UNK,QD
  7. CLONIDINE HYDROCHLORIDE TABLETS USP [Suspect]
     Active Substance: CLONIDINE HYDROCHLORIDE
     Indication: HYPERTENSION
     Dosage: 3 TAB QAM AND 2 TABS QPM
     Route: 048
     Dates: start: 1996
  8. B COMPLEX (B50) [Concomitant]
     Indication: PRODUCT USED FOR UNKNOWN INDICATION
     Dosage: UNK
  9. FISH OIL [Concomitant]
     Active Substance: FISH OIL
     Indication: PRODUCT USED FOR UNKNOWN INDICATION
     Dosage: UNK
  10. CLONIDINE HYDROCHLORIDE TABLETS USP [Suspect]
     Active Substance: CLONIDINE HYDROCHLORIDE
     Dosage: 0.1 MG,BID
     Route: 048
     Dates: end: 2010
  11. PERCOGESIC                         /00303801/ [Concomitant]
     Indication: PRODUCT USED FOR UNKNOWN INDICATION
     Dosage: 12.5 MG,QD
  12. CLONIDINE HYDROCHLORIDE TABLETS USP [Suspect]
     Active Substance: CLONIDINE HYDROCHLORIDE
     Dosage: 0.2 MG,BID
     Route: 048
     Dates: start: 2010
  13. CLONIDINE HYDROCHLORIDE TABLETS USP [Suspect]
     Active Substance: CLONIDINE HYDROCHLORIDE
     Dosage: 0.2 MG, BID
     Route: 048
  14. METFORMIN [Concomitant]
     Active Substance: METFORMIN HYDROCHLORIDE
     Indication: PRODUCT USED FOR UNKNOWN INDICATION
     Dosage: 500 MG,UNK
  15. ALENDRONATE [Concomitant]
     Active Substance: ALENDRONATE SODIUM
     Indication: PRODUCT USED FOR UNKNOWN INDICATION
     Dosage: 70 MG,QW
  16. MULTIVITAMIN [Concomitant]
     Active Substance: VITAMINS
     Indication: PRODUCT USED FOR UNKNOWN INDICATION
     Dosage: UNK UNK,QD

REACTIONS (6)
  - Drug dependence [Not Recovered/Not Resolved]
  - Dizziness [Not Recovered/Not Resolved]
  - Headache [Not Recovered/Not Resolved]
  - Nausea [Not Recovered/Not Resolved]
  - Drug withdrawal syndrome [Recovered/Resolved]
  - Drug dose omission [Recovered/Resolved]

NARRATIVE: CASE EVENT DATE: 1996
